FAERS Safety Report 5689202-4 (Version None)
Quarter: 2008Q1

REPORT INFORMATION
  Report Type: 
  Country: None (occurrence: None)
  Receive Date: 20080331
  Receipt Date: 20080321
  Transmission Date: 20080703
  Serious: Yes (Hospitalization)
  Sender: FDA-Public Use
  Company Number: FR-BRISTOL-MYERS SQUIBB COMPANY-14130199

PATIENT
  Age: 54 Year
  Sex: Female
  Weight: 68 kg

DRUGS (3)
  1. LYSODREN [Suspect]
     Indication: ADRENOCORTICAL CARCINOMA
     Route: 048
     Dates: start: 20070820, end: 20080201
  2. HYDROCORTISONE [Concomitant]
  3. FLUDROCORTISONE ACETATE [Concomitant]

REACTIONS (10)
  - ANOREXIA [None]
  - BLOOD COUNT ABNORMAL [None]
  - BLOOD POTASSIUM DECREASED [None]
  - FATIGUE [None]
  - LIVER FUNCTION TEST ABNORMAL [None]
  - MYALGIA [None]
  - NAUSEA [None]
  - SKIN IRRITATION [None]
  - VOMITING [None]
  - WEIGHT DECREASED [None]
